FAERS Safety Report 5689980-4 (Version None)
Quarter: 2008Q2

REPORT INFORMATION
  Report Type: 
  Country: None (occurrence: None)
  Receive Date: 20080401
  Receipt Date: 20070529
  Transmission Date: 20081010
  Serious: No
  Sender: FDA-Public Use
  Company Number: A0653186A

PATIENT
  Age: 66 Year
  Sex: Female

DRUGS (2)
  1. FLOVENT [Suspect]
     Indication: ASTHMA
     Dosage: 1PUFF TWICE PER DAY
     Route: 055
  2. SEREVENT [Concomitant]

REACTIONS (3)
  - DRY MOUTH [None]
  - DYSPHONIA [None]
  - LARYNGITIS [None]
